FAERS Safety Report 4664712-7 (Version None)
Quarter: 2005Q2

REPORT INFORMATION
  Report Type: 
  Country: None (occurrence: None)
  Receive Date: 20050516
  Receipt Date: 20050502
  Transmission Date: 20051028
  Serious: Yes (Hospitalization)
  Sender: FDA-Public Use
  Company Number: 2005062623

PATIENT

DRUGS (1)
  1. GENOTROPIN [Suspect]
     Indication: PRADER-WILLI SYNDROME
     Dosage: (16 I.U.) SUBCUTANEOUS
     Route: 058

REACTIONS (2)
  - HYPOTONIA [None]
  - PULMONARY OEDEMA [None]
